FAERS Safety Report 8621549-1 (Version None)
Quarter: 2012Q3

REPORT INFORMATION
  Report Type: 
  Country: None (occurrence: None)
  Receive Date: 20120824
  Receipt Date: 20120821
  Transmission Date: 20120928
  Serious: Yes (Other)
  Sender: FDA-Public Use
  Company Number: CHPA2012US017960

PATIENT
  Age: 62 Year
  Sex: Female

DRUGS (2)
  1. MYOFLEX ANALGESIC CREME [Suspect]
     Indication: FIBROMYALGIA
     Dosage: UNK (A DROP AS NEEDED)
     Route: 061
  2. PERCOCET [Concomitant]

REACTIONS (4)
  - OFF LABEL USE [None]
  - THERAPEUTIC RESPONSE UNEXPECTED [None]
  - FIBROMYALGIA [None]
  - INCORRECT DRUG ADMINISTRATION DURATION [None]
